FAERS Safety Report 9180211 (Version 1)
Quarter: 2013Q1

REPORT INFORMATION
  Report Type: Spontaneous
  Country: US (occurrence: US)
  Receive Date: 20130322
  Receipt Date: 20130322
  Transmission Date: 20140127
  Serious: Yes (Hospitalization, Other)
  Sender: FDA-Public Use
  Company Number: US-009507513-1205USA02698

PATIENT
  Age: 63 None
  Sex: Female
  Weight: 113.4 kg

DRUGS (25)
  1. ELAVIL [Suspect]
     Indication: SLEEP DISORDER
     Dosage: 100 MG, QD
     Route: 048
     Dates: start: 2012
  2. ELAVIL [Suspect]
     Indication: DIABETIC NEUROPATHY
  3. LYRICA [Suspect]
     Indication: DIABETIC NEUROPATHY
     Dosage: 100 MG, QD
     Route: 048
     Dates: start: 201202
  4. LYRICA [Suspect]
     Indication: NEUROPATHY PERIPHERAL
     Dosage: 100 MG, BID
     Route: 048
     Dates: start: 201203, end: 201203
  5. COUMADIN [Suspect]
     Route: 042
     Dates: start: 201203
  6. IRON (UNSPECIFIED) [Suspect]
     Indication: BLOOD IRON DECREASED
     Dosage: UNK
     Route: 042
     Dates: start: 201203
  7. ANTIMICROBIAL (UNSPECIFIED) [Suspect]
     Dosage: UNK
     Dates: start: 2012
  8. LEVAQUIN [Suspect]
     Dosage: UNK
     Dates: start: 2012, end: 2012
  9. LOVENOX [Suspect]
     Dosage: UNK
     Dates: start: 2012
  10. GABAPENTIN [Suspect]
     Indication: NEUROPATHY PERIPHERAL
     Dosage: 600 MG, TID
  11. GABAPENTIN [Suspect]
     Dosage: 600 MG, TID
     Dates: start: 201205
  12. PROCRIT [Suspect]
     Dosage: UNK
  13. METFORMIN [Concomitant]
     Indication: DIABETES MELLITUS
     Dosage: 1000MG BID
  14. ALPRAZOLAM [Concomitant]
     Dosage: 1 MG, PRN
  15. ALLOPURINOL [Concomitant]
     Dosage: 200 MG, BID
  16. ASPIRIN [Concomitant]
     Dosage: UNK, QD
  17. PROPRANOLOL HYDROCHLORIDE [Concomitant]
     Dosage: 225 MG, UNK
     Route: 048
  18. HYDROCODONE [Concomitant]
     Indication: BACK PAIN
     Dosage: UNK, PRN
  19. WARFARIN [Concomitant]
     Dosage: 8.5 MG, QD
  20. RANITIDINE [Concomitant]
     Dosage: 300 MG, QD
     Route: 048
  21. TORSEMIDE [Concomitant]
     Dosage: 20 MG, BID
  22. HYOSCYAMINE [Concomitant]
     Dosage: 0.125 MG, BID
     Route: 060
  23. CARDIZEM [Concomitant]
     Dosage: UNK, BID
  24. KLOR-CON [Concomitant]
     Dosage: 20 MEQ, BID
  25. AMITRIPTYLINE HYDROCHLORIDE [Concomitant]
     Dosage: 50 MG, QD

REACTIONS (34)
  - Atrial fibrillation [Unknown]
  - Transient ischaemic attack [Unknown]
  - Atrial fibrillation [Unknown]
  - Myocardial infarction [Unknown]
  - Lung infection [Unknown]
  - Kidney infection [Unknown]
  - Dehydration [Unknown]
  - Cerebrovascular accident [Unknown]
  - Atrial fibrillation [Unknown]
  - Cerebrovascular accident [Unknown]
  - Blood iron decreased [Unknown]
  - Oesophageal achalasia [Unknown]
  - Nausea [Unknown]
  - Circulatory collapse [Unknown]
  - Myelodysplastic syndrome [Unknown]
  - Dyspnoea [Unknown]
  - Iron deficiency [Unknown]
  - Heart rate increased [Unknown]
  - Gait disturbance [Unknown]
  - Pneumonia aspiration [Unknown]
  - Phlebitis [Unknown]
  - Abscess [Unknown]
  - Insomnia [Recovering/Resolving]
  - Pain in extremity [Recovering/Resolving]
  - Cardiac disorder [Unknown]
  - Memory impairment [Unknown]
  - Infection [Unknown]
  - Skin mass [Unknown]
  - Blood glucose decreased [Unknown]
  - Dizziness [Unknown]
  - Haemorrhage [Unknown]
  - Somnolence [Unknown]
  - Fatigue [Unknown]
  - Chronic obstructive pulmonary disease [Unknown]
